FAERS Safety Report 6758581-9 (Version None)
Quarter: 2010Q2

REPORT INFORMATION
  Report Type: 
  Country: None (occurrence: None)
  Receive Date: 20100607
  Receipt Date: 20100531
  Transmission Date: 20101027
  Serious: Yes (Hospitalization)
  Sender: FDA-Public Use
  Company Number: US-ROCHE-706593

PATIENT
  Age: 46 Year
  Sex: Female

DRUGS (2)
  1. NAPROXEN [Suspect]
     Route: 065
  2. METHADONE [Concomitant]

REACTIONS (1)
  - INTESTINAL DIAPHRAGM DISEASE [None]
